FAERS Safety Report 26122373 (Version 2)
Quarter: 2025Q4

REPORT INFORMATION
  Report Type: Spontaneous
  Country: US (occurrence: US)
  Receive Date: 20251204
  Receipt Date: 20251217
  Transmission Date: 20260118
  Serious: No
  Sender: TEVA
  Company Number: US-TEVA-VS-3398840

PATIENT
  Age: 9 Year
  Sex: Male

DRUGS (1)
  1. METHYLPHENIDATE [Suspect]
     Active Substance: METHYLPHENIDATE
     Indication: Attention deficit hyperactivity disorder
     Dosage: METHYLPHENIDATE HCL 27MG ER TABLETS 100-01
     Route: 065
     Dates: start: 20250317

REACTIONS (1)
  - Drug effect less than expected [Unknown]
